FAERS Safety Report 8235711-3 (Version None)
Quarter: 2012Q1

REPORT INFORMATION
  Report Type: 
  Country: None (occurrence: None)
  Receive Date: 20120326
  Receipt Date: 20120315
  Transmission Date: 20120608
  Serious: Yes (Other)
  Sender: FDA-Public Use
  Company Number: PHFR2012GB001388

PATIENT
  Sex: Male

DRUGS (6)
  1. CLOZARIL [Suspect]
     Indication: SCHIZOPHRENIA
     Route: 048
     Dates: start: 20070531, end: 20080325
  2. CLOZARIL [Suspect]
     Route: 048
     Dates: start: 20080612, end: 20080801
  3. CLOZARIL [Suspect]
     Route: 048
     Dates: start: 20080918, end: 20110228
  4. RISPERIDONE [Concomitant]
     Dosage: 8 MG, BID
  5. CHLORPROMAZINE HCL [Concomitant]
     Dosage: 200 MG, (200 MG NOCT UPTO 600MG IN PRN HRS)
  6. CLOZARIL [Suspect]
     Route: 048
     Dates: start: 20080401, end: 20080608

REACTIONS (4)
  - INTENTIONAL SELF-INJURY [None]
  - NEUTROPHIL COUNT DECREASED [None]
  - MENTAL IMPAIRMENT [None]
  - WHITE BLOOD CELL COUNT DECREASED [None]
